FAERS Safety Report 21207106 (Version 1)
Quarter: 2022Q3

REPORT INFORMATION
  Report Type: Spontaneous
  Country: US (occurrence: None)
  Receive Date: 20220811
  Receipt Date: 20220811
  Transmission Date: 20221027
  Serious: No
  Sender: FDA-Public Use
  Company Number: None

PATIENT
  Sex: Female

DRUGS (5)
  1. RASUVO [Suspect]
     Active Substance: METHOTREXATE SODIUM
     Indication: Osteoporosis
     Dosage: 12.5ML WEEKLY SUBCUTANEOUS?
     Route: 058
     Dates: start: 202203
  2. RASUVO [Suspect]
     Active Substance: METHOTREXATE SODIUM
     Indication: Polyarthritis
  3. RASUVO [Suspect]
     Active Substance: METHOTREXATE SODIUM
     Indication: Gastroenteritis
  4. RASUVO [Suspect]
     Active Substance: METHOTREXATE SODIUM
     Indication: Rheumatoid arthritis
  5. HUMIRA [Suspect]
     Active Substance: ADALIMUMAB
     Indication: Osteoporosis
     Dosage: 40MG EVERY 14 DAYS SUBCUTANEOUS?
     Route: 058
     Dates: start: 202109

REACTIONS (3)
  - Joint swelling [None]
  - Arthralgia [None]
  - Pain [None]
